FAERS Safety Report 8078307-9 (Version None)
Quarter: 2012Q1

REPORT INFORMATION
  Report Type: 
  Country: None (occurrence: None)
  Receive Date: 20120123
  Receipt Date: 20120110
  Transmission Date: 20120608
  Serious: Yes (Hospitalization)
  Sender: FDA-Public Use
  Company Number: 2011100037

PATIENT
  Age: 45 Year
  Sex: Male

DRUGS (21)
  1. ALLOPURINOL [Concomitant]
  2. OMEGA-3 ACID ETHYL ESTERS (OMEGA-3 ACID ETHYL ESTERS) [Concomitant]
  3. ALISKIREN (ALISKIREN FUMARATE) [Concomitant]
  4. CATAPRESSAN (CLONIDINE HYDROCHLORIDE) [Concomitant]
  5. LIPROLOG (LISPRO INSULIN) [Concomitant]
  6. ASPIRIN [Concomitant]
  7. LEVEMIR [Concomitant]
  8. CLOPIDOGREL BISULFATE [Concomitant]
  9. PANTOPRAZOLE [Concomitant]
  10. VILDAGLIPTIN (VILDAGLIPTIN) [Concomitant]
  11. NITROLINGUAL (NITROGLYCERIN) [Concomitant]
  12. SPIRONOLACTONE [Suspect]
     Indication: PRODUCT USED FOR UNKNOWN INDICATION
     Dosage: 1 DOSAGE FORMS (1 DOSAGE FORMS, 1 IN 1 D)
     Dates: start: 20110504
  13. TORSEMIDE [Suspect]
     Indication: PRODUCT USED FOR UNKNOWN INDICATION
     Dosage: 10 MG (10 MG, 1 IN 1 D)
     Dates: start: 20100108, end: 20110509
  14. NEBIVOLOL HCL [Concomitant]
  15. INEGY (EZETIMIBE, SIMVASTATIN) [Concomitant]
  16. ALEGLITAZAR (ALEGLITAZAR) [Suspect]
     Indication: CARDIOVASCULAR EVENT PROPHYLAXIS
     Dosage: LAST DOSE PRIOR TO HYPERKALAEMIA: 04JUL2011, DOSE BLINDED, TEMPORARILY INTERUPPTED, FREQUENCY QD, O
     Route: 048
     Dates: start: 20110215
  17. ALEGLITAZAR (ALEGLITAZAR) [Suspect]
     Indication: CARDIOVASCULAR EVENT PROPHYLAXIS
     Dosage: LAST DOSE PRIOR TO HYPERKALAEMIA: 04JUL2011, DOSE BLINDED, TEMPORARILY INTERUPPTED, FREQUENCY QD, O
     Route: 048
     Dates: start: 20110215
  18. AMLODIPINE [Concomitant]
  19. METFORMIN HCL [Concomitant]
  20. HYDROCHLOROTHIAZIDE [Concomitant]
  21. DIOVAN [Concomitant]

REACTIONS (9)
  - NAUSEA [None]
  - RENAL IMPAIRMENT [None]
  - HYPERKALAEMIA [None]
  - TREATMENT NONCOMPLIANCE [None]
  - GLYCOSYLATED HAEMOGLOBIN INCREASED [None]
  - CAROTID ARTERY STENOSIS [None]
  - VOMITING [None]
  - BLOOD GLUCOSE INCREASED [None]
  - HYPERTENSIVE CRISIS [None]
